FAERS Safety Report 9526619 (Version 1)
Quarter: 2013Q3

REPORT INFORMATION
  Report Type: Spontaneous
  Country: GB (occurrence: GB)
  Receive Date: 20130916
  Receipt Date: 20130916
  Transmission Date: 20140515
  Serious: Yes (Hospitalization)
  Sender: FDA-Public Use
  Company Number: PHHY2013GB099285

PATIENT
  Sex: Male

DRUGS (8)
  1. SIMVASTATIN [Suspect]
     Dosage: 40 MG, AT NIGHT
  2. IMUVAC [Suspect]
  3. CETIRIZINE [Concomitant]
     Dosage: 10 MG, QD
  4. DIGOXIN [Concomitant]
     Dosage: 125 UG, QD
  5. FUROSEMIDE [Concomitant]
     Dosage: 40 MG, QD
  6. WARFARIN [Concomitant]
  7. NOREPINEPHRINE [Concomitant]
  8. ANTIBIOTICS [Concomitant]

REACTIONS (9)
  - Multi-organ failure [Recovered/Resolved]
  - Rhabdomyolysis [Recovered/Resolved]
  - Renal failure acute [Recovered/Resolved]
  - Pain in extremity [Recovered/Resolved]
  - Malaise [Recovered/Resolved]
  - Oedema peripheral [Recovered/Resolved]
  - Muscular weakness [Recovered/Resolved]
  - Myoglobinuria [Recovered/Resolved]
  - Myositis [Recovered/Resolved]
